FAERS Safety Report 7615827-2 (Version None)
Quarter: 2011Q3

REPORT INFORMATION
  Report Type: 
  Country: None (occurrence: None)
  Receive Date: 20110711
  Receipt Date: 20110624
  Transmission Date: 20111222
  Serious: Yes (Hospitalization, Other)
  Sender: FDA-Public Use
  Company Number: 2011MA008042

PATIENT
  Age: 62 Year
  Sex: Male

DRUGS (3)
  1. DOMPERIDE-ACETAMINOPHEN (NO PREF. NAME) [Suspect]
     Indication: PRODUCT USED FOR UNKNOWN INDICATION
     Dosage: QD;
  2. ESCITALOPRAM [Suspect]
     Indication: PRODUCT USED FOR UNKNOWN INDICATION
     Dosage: 10 MG, QD;
  3. ZOLPIDEM TARTRATE [Suspect]
     Indication: SLEEP DISORDER
     Dosage: 180 MG, QD;

REACTIONS (4)
  - WITHDRAWAL SYNDROME [None]
  - DELIRIUM [None]
  - INCORRECT DOSE ADMINISTERED [None]
  - DRUG DEPENDENCE [None]
